FAERS Safety Report 7849358-1 (Version None)
Quarter: 2011Q4

REPORT INFORMATION
  Report Type: 
  Country: None (occurrence: None)
  Receive Date: 20111021
  Receipt Date: 20111005
  Transmission Date: 20120403
  Serious: Yes (Hospitalization)
  Sender: FDA-Public Use
  Company Number: 2011SP003364

PATIENT
  Age: 65 Year
  Sex: Female

DRUGS (3)
  1. XOPENEX HFA [Suspect]
     Indication: CHRONIC OBSTRUCTIVE PULMONARY DISEASE
     Dosage: ;PRN;INHALATION
     Route: 055
  2. XOPENEX HFA [Suspect]
     Indication: ASTHMA
     Dosage: ;PRN;INHALATION
     Route: 055
  3. XOPENEX HFA [Suspect]
     Indication: BRONCHITIS
     Dosage: ;PRN;INHALATION
     Route: 055

REACTIONS (7)
  - HIP ARTHROPLASTY [None]
  - ROTATOR CUFF REPAIR [None]
  - METABOLIC DISORDER [None]
  - HYPONATRAEMIA [None]
  - BLOOD GLUCOSE INCREASED [None]
  - HYPOKALAEMIA [None]
  - KNEE ARTHROPLASTY [None]
